FAERS Safety Report 11680687 (Version 2)
Quarter: 2015Q4

REPORT INFORMATION
  Report Type: Spontaneous
  Country: US (occurrence: US)
  Receive Date: 20151027
  Receipt Date: 20151104
  Transmission Date: 20160304
  Serious: No
  Sender: FDA-Public Use
  Company Number: US-ELI_LILLY_AND_COMPANY-US200912002743

PATIENT
  Sex: Female

DRUGS (1)
  1. FORTEO [Suspect]
     Active Substance: TERIPARATIDE
     Dosage: 20 UG, UNK
     Route: 058
     Dates: start: 20090417, end: 20091203

REACTIONS (5)
  - Arthralgia [Unknown]
  - Arthritis [Unknown]
  - Gait disturbance [Unknown]
  - Bone pain [Unknown]
  - Intentional product misuse [Unknown]
